FAERS Safety Report 7568435-6 (Version None)
Quarter: 2011Q2

REPORT INFORMATION
  Report Type: 
  Country: None (occurrence: None)
  Receive Date: 20110617
  Receipt Date: 20110608
  Transmission Date: 20111010
  Serious: Yes (Hospitalization, Other)
  Sender: FDA-Public Use
  Company Number: 2011S1000147

PATIENT
  Age: 71 Year
  Sex: Male

DRUGS (2)
  1. AMICAR [Suspect]
     Indication: GASTROINTESTINAL HAEMORRHAGE
  2. ROMIPLOSTIM [Suspect]
     Indication: PLATELET PRODUCTION DECREASED

REACTIONS (4)
  - SOMNOLENCE [None]
  - PERIORBITAL OEDEMA [None]
  - CONJUNCTIVAL OEDEMA [None]
  - VISUAL ACUITY REDUCED [None]
